FAERS Safety Report 24183367 (Version 1)
Quarter: 2024Q3

REPORT INFORMATION
  Report Type: Spontaneous
  Country: DK (occurrence: None)
  Receive Date: 20240807
  Receipt Date: 20240807
  Transmission Date: 20241017
  Serious: Yes (Other)
  Sender: ADDMEDICA
  Company Number: DK-CTRS-202400157

PATIENT
  Age: 15 Year
  Sex: Female

DRUGS (1)
  1. HYDROXYUREA [Suspect]
     Active Substance: HYDROXYUREA
     Indication: Sickle cell anaemia with crisis

REACTIONS (3)
  - Vernal keratoconjunctivitis [Unknown]
  - Dermatitis atopic [Unknown]
  - Lichen sclerosus [Unknown]
